FAERS Safety Report 9871305 (Version 1)
Quarter: 2014Q1

REPORT INFORMATION
  Report Type: Spontaneous
  Country: PL (occurrence: PL)
  Receive Date: 20140205
  Receipt Date: 20140205
  Transmission Date: 20141002
  Serious: Yes (Hospitalization, Other)
  Sender: FDA-Public Use
  Company Number: PL-ACTAVIS-2014-01312

PATIENT
  Age: 63 Year
  Sex: Female

DRUGS (2)
  1. CLOBETASOL [Suspect]
     Indication: PSORIASIS
     Dosage: UNK
     Route: 061
  2. HYDROCORTISONE (UNKNOWN) [Suspect]
     Indication: PSORIASIS
     Dosage: UNK
     Route: 061

REACTIONS (1)
  - Erythrodermic psoriasis [Recovering/Resolving]
